FAERS Safety Report 17843402 (Version 3)
Quarter: 2020Q3

REPORT INFORMATION
  Report Type: Report from Study
  Country: IT (occurrence: IT)
  Receive Date: 20200530
  Receipt Date: 20200703
  Transmission Date: 20201103
  Serious: Yes (Other)
  Sender: FDA-Public Use
  Company Number: IT-ASTRAZENECA-2020SE69715

PATIENT
  Age: 68 Year
  Sex: Female

DRUGS (5)
  1. LYNPARZA [Suspect]
     Active Substance: OLAPARIB
     Indication: OVARIAN EPITHELIAL CANCER
     Route: 048
  2. CARBOPLATINUM [Concomitant]
     Active Substance: CARBOPLATIN
     Dates: start: 20190619, end: 20191002
  3. ANASTROZOLE. [Concomitant]
     Active Substance: ANASTROZOLE
  4. LYNPARZA [Suspect]
     Active Substance: OLAPARIB
     Indication: OVARIAN EPITHELIAL CANCER
     Route: 048
     Dates: start: 20200320
  5. TAXOLO [Concomitant]
     Dates: start: 20190619, end: 20191002

REACTIONS (1)
  - Mucosal inflammation [Not Recovered/Not Resolved]

NARRATIVE: CASE EVENT DATE: 20200417
